FAERS Safety Report 13924477 (Version 1)
Quarter: 2017Q3

REPORT INFORMATION
  Report Type: Spontaneous
  Country: US (occurrence: US)
  Receive Date: 20170831
  Receipt Date: 20170831
  Transmission Date: 20171127
  Serious: No
  Sender: FDA-Public Use
  Company Number: US-009507513-1708USA012625

PATIENT
  Age: 41 Year
  Sex: Female

DRUGS (15)
  1. IBUPROFEN. [Concomitant]
     Active Substance: IBUPROFEN
  2. DOCUSATE SODIUM (+) SENNA [Concomitant]
  3. LOVENOX [Concomitant]
     Active Substance: ENOXAPARIN SODIUM
  4. ONDANSETRON [Concomitant]
     Active Substance: ONDANSETRON
  5. ASPIRIN. [Concomitant]
     Active Substance: ASPIRIN
  6. SOMAVERT [Concomitant]
     Active Substance: PEGVISOMANT
  7. GABAPENTIN. [Concomitant]
     Active Substance: GABAPENTIN
  8. XANAX [Concomitant]
     Active Substance: ALPRAZOLAM
  9. NYSTATIN. [Concomitant]
     Active Substance: NYSTATIN
  10. FIORICET [Concomitant]
     Active Substance: ACETAMINOPHEN\BUTALBITAL\CAFFEINE
  11. LISINOPRIL. [Concomitant]
     Active Substance: LISINOPRIL
  12. KEYTRUDA [Suspect]
     Active Substance: PEMBROLIZUMAB
     Indication: TRIPLE NEGATIVE BREAST CANCER
     Route: 042
  13. GLIMEPIRIDE. [Concomitant]
     Active Substance: GLIMEPIRIDE
  14. FLUTICASONE. [Concomitant]
     Active Substance: FLUTICASONE
  15. METFORMIN [Concomitant]
     Active Substance: METFORMIN HYDROCHLORIDE

REACTIONS (5)
  - Headache [Unknown]
  - Abdominal distension [Unknown]
  - Fatigue [Unknown]
  - Menorrhagia [Unknown]
  - Pain [Unknown]

NARRATIVE: CASE EVENT DATE: 20170819
